FAERS Safety Report 6787701-5 (Version None)
Quarter: 2010Q2

REPORT INFORMATION
  Report Type: 
  Country: None (occurrence: None)
  Receive Date: 20100623
  Receipt Date: 20070801
  Transmission Date: 20101027
  Serious: No
  Sender: FDA-Public Use
  Company Number: US-PFIZER INC-2007063773

PATIENT
  Sex: Female
  Weight: 81.363 kg

DRUGS (1)
  1. PROVERA [Suspect]
     Indication: MENSTRUATION IRREGULAR
     Dates: start: 20070710, end: 20070724

REACTIONS (2)
  - DYSMENORRHOEA [None]
  - MENORRHAGIA [None]
